FAERS Safety Report 9036114 (Version 1)
Quarter: 2013Q1

REPORT INFORMATION
  Report Type: Report from Study
  Country: US (occurrence: US)
  Receive Date: 20130129
  Receipt Date: 20130129
  Transmission Date: 20140127
  Serious: No
  Sender: FDA-Public Use
  Company Number: US-ABBOTT-12P-163-0922010-00

PATIENT
  Age: 57 Year
  Sex: Female

DRUGS (5)
  1. HUMIRA 40 MG/0.8 ML PEN [Suspect]
     Indication: CROHN^S DISEASE
     Dosage: LOADING DOSE
     Dates: start: 20120320, end: 20120320
  2. XIFAXAN [Concomitant]
     Indication: DIARRHOEA
     Dosage: 200 MG X 2 TABLETS TWICE DAILY IF NEEDED
  3. LEXAPRO [Concomitant]
     Indication: DEPRESSION
     Dosage: 10 MG DAILY
  4. TYLENOL [Concomitant]
     Indication: ARTHRALGIA
  5. CALMOSEPTINE [Concomitant]
     Indication: INTESTINAL FISTULA

REACTIONS (4)
  - Dry eye [Not Recovered/Not Resolved]
  - Paraesthesia [Unknown]
  - Food allergy [Unknown]
  - Visual impairment [Unknown]
